FAERS Safety Report 8955621 (Version 2)
Quarter: 2013Q3

REPORT INFORMATION
  Report Type: Report from Study
  Country: US (occurrence: US)
  Receive Date: 20121207
  Receipt Date: 20130718
  Transmission Date: 20140515
  Serious: Yes (Other)
  Sender: FDA-Public Use
  Company Number: US-ABBOTT-12P-163-1015733-00

PATIENT
  Age: 18 Year
  Sex: Female

DRUGS (3)
  1. KALETRA [Suspect]
     Indication: ANTIVIRAL TREATMENT
     Route: 048
     Dates: start: 20120625, end: 20120906
  2. KALETRA [Suspect]
     Dosage: NOT TAKEN AT CONCEPTION
     Route: 048
     Dates: start: 20120926
  3. COMBIVIR [Suspect]
     Indication: ANTIVIRAL TREATMENT
     Route: 048
     Dates: start: 20120625

REACTIONS (1)
  - Pre-eclampsia [Unknown]
